FAERS Safety Report 12007961 (Version 3)
Quarter: 2018Q1

REPORT INFORMATION
  Report Type: Spontaneous
  Country: JP (occurrence: JP)
  Receive Date: 20160205
  Receipt Date: 20180326
  Transmission Date: 20180508
  Serious: Yes (Death, Other)
  Sender: FDA-Public Use
  Company Number: JP-TAKEDA-2016TJP001949

PATIENT
  Age: 86 Year
  Sex: Female

DRUGS (6)
  1. TEPRENONE [Concomitant]
     Active Substance: TEPRENONE
     Indication: ANASTOMOTIC ULCER
     Dosage: 3 DF, UNK
     Route: 048
  2. TAKEPRON INTRAVENOUS 30MG. [Suspect]
     Active Substance: LANSOPRAZOLE
     Indication: ANASTOMOTIC ULCER HAEMORRHAGE
     Dosage: 60 MG, UNK
     Route: 041
  3. LOXOPROFEN SODIUM [Suspect]
     Active Substance: LOXOPROFEN SODIUM
     Indication: BACK PAIN
     Dosage: 3 DF, TID
     Route: 048
  4. DICLOFENAC SODIUM. [Suspect]
     Active Substance: DICLOFENAC SODIUM
     Indication: BACK PAIN
     Dosage: UNK
     Route: 048
  5. ALUMINUM HYDROXIDE GEL [Concomitant]
     Active Substance: ALGELDRATE
     Dosage: 80 ML, UNK
     Route: 048
  6. THROMBIN [Concomitant]
     Active Substance: THROMBIN
     Dosage: 20000 IU, UNK
     Route: 065

REACTIONS (2)
  - Acute kidney injury [Fatal]
  - Blood pressure decreased [Fatal]
